FAERS Safety Report 8502630-4 (Version None)
Quarter: 2012Q3

REPORT INFORMATION
  Report Type: 
  Country: None (occurrence: None)
  Receive Date: 20120711
  Receipt Date: 20120703
  Transmission Date: 20120928
  Serious: Yes (Hospitalization)
  Sender: FDA-Public Use
  Company Number: FR-PFIZER INC-2012162307

PATIENT
  Age: 74 Year
  Sex: Female

DRUGS (14)
  1. FUCIDINE CAP [Suspect]
     Indication: INFECTION PROPHYLAXIS
     Dosage: UNK
     Route: 048
     Dates: start: 20120420, end: 20120512
  2. ALDACTAZINE [Concomitant]
     Dosage: UNK
  3. SPASFON [Concomitant]
     Dosage: UNK
  4. IRBESARTAN [Concomitant]
     Dosage: UNK
  5. ACETAMINOPHEN [Concomitant]
     Dosage: UNK
  6. AMLODIPINE BESYLATE [Concomitant]
     Dosage: UNK
  7. ART 50 [Concomitant]
     Dosage: UNK
  8. ASPIRIN [Concomitant]
     Dosage: UNK
  9. PRAVASTATIN [Concomitant]
     Dosage: UNK
  10. LANTUS [Concomitant]
     Dosage: UNK
  11. CEFPODOXIME PROXETIL [Suspect]
     Indication: INFECTION PROPHYLAXIS
     Dosage: UNK
     Route: 048
     Dates: start: 20120420, end: 20120512
  12. NEXIUM [Concomitant]
     Dosage: UNK
  13. NOVORAPID [Concomitant]
     Dosage: UNK
  14. ESTROGEL [Concomitant]
     Dosage: UNK

REACTIONS (2)
  - HEPATIC ENZYME INCREASED [None]
  - PYREXIA [None]
